FAERS Safety Report 8184015-6 (Version None)
Quarter: 2012Q1

REPORT INFORMATION
  Report Type: 
  Country: None (occurrence: None)
  Receive Date: 20120305
  Receipt Date: 20120301
  Transmission Date: 20120608
  Serious: Yes (Death, Other)
  Sender: FDA-Public Use
  Company Number: US-SHIRE-ALL1-2012-01208

PATIENT
  Age: 63 Year
  Sex: Female

DRUGS (4)
  1. MIDODRINE HYDROCHLORIDE [Suspect]
     Dosage: 15 MG, 1X/DAY:QD
     Route: 048
  2. DROXIDOPA [Suspect]
     Indication: PRODUCT USED FOR UNKNOWN INDICATION
     Dosage: 100 MG, 3X/DAY:TID
     Route: 065
  3. DROXIDOPA [Suspect]
     Dosage: 200 MG, 3X/DAY:TID
     Route: 065
  4. MIDODRINE HYDROCHLORIDE [Suspect]
     Indication: PRODUCT USED FOR UNKNOWN INDICATION
     Dosage: 15 MG, 1X/DAY:QD
     Route: 048

REACTIONS (2)
  - HYPERTENSION [None]
  - CARDIO-RESPIRATORY ARREST [None]
